FAERS Safety Report 9616756 (Version 3)
Quarter: 2013Q4

REPORT INFORMATION
  Report Type: Report from Study
  Country: NL (occurrence: NL)
  Receive Date: 20131011
  Receipt Date: 20131115
  Transmission Date: 20140711
  Serious: Yes (Life-Threatening, Hospitalization)
  Sender: FDA-Public Use
  Company Number: NL-JNJFOC-20131002713

PATIENT
  Age: 72 Year
  Sex: Male

DRUGS (14)
  1. ABIRATERONE ACETATE [Suspect]
     Indication: PROSTATE CANCER
     Route: 048
     Dates: start: 20120907
  2. ABIRATERONE ACETATE [Suspect]
     Indication: PROSTATE CANCER
     Route: 048
     Dates: start: 20121114, end: 20130311
  3. KALIUM (POTASSIUM CHLORIDE) [Concomitant]
     Route: 065
  4. PREDNISONE [Concomitant]
     Route: 065
  5. FRAXIPARINE [Concomitant]
     Route: 065
  6. DIGOXINE [Concomitant]
     Route: 065
  7. METOPROLOL [Concomitant]
     Route: 065
  8. AMLODIPINE [Concomitant]
     Route: 065
  9. CYPROTERONE ACETATE [Concomitant]
     Route: 065
  10. TAZOCIN [Concomitant]
     Route: 065
     Dates: start: 20121112
  11. GOSERELIN [Concomitant]
     Route: 065
  12. PARACETAMOL [Concomitant]
     Route: 065
  13. COMBIVENT [Concomitant]
     Route: 065
  14. LUMIGAN [Concomitant]
     Route: 031

REACTIONS (1)
  - Diverticular perforation [Unknown]
